FAERS Safety Report 10768503 (Version 2)
Quarter: 2016Q1

REPORT INFORMATION
  Report Type: Other
  Country: US (occurrence: US)
  Receive Date: 20150206
  Receipt Date: 20160217
  Transmission Date: 20160525
  Serious: No
  Sender: FDA-Public Use
  Company Number: US-ACORDA-ACO_104772_2014

PATIENT
  Age: 66 Year
  Sex: Male

DRUGS (1)
  1. AMPYRA [Suspect]
     Active Substance: DALFAMPRIDINE
     Indication: MULTIPLE SCLEROSIS
     Dosage: 10 MG, (2 BY MOUTH DAILY)
     Route: 048
     Dates: start: 20100414

REACTIONS (3)
  - Urinary tract infection [Unknown]
  - Adverse event [Unknown]
  - Anxiety [Unknown]

NARRATIVE: CASE EVENT DATE: 20110419
